FAERS Safety Report 5512957-6 (Version None)
Quarter: 2007Q4

REPORT INFORMATION
  Report Type: 
  Country: None (occurrence: None)
  Receive Date: 20071112
  Receipt Date: 20071102
  Transmission Date: 20080405
  Serious: Yes (Hospitalization, Other)
  Sender: FDA-Public Use
  Company Number: JP-MERCK-0710USA06047

PATIENT
  Age: 65 Year
  Sex: Female

DRUGS (4)
  1. ZETIA [Suspect]
     Indication: HYPERCHOLESTEROLAEMIA
     Route: 048
     Dates: start: 20070913, end: 20071001
  2. CRESTOR [Suspect]
     Indication: HYPERCHOLESTEROLAEMIA
     Route: 048
     Dates: start: 20061227, end: 20071001
  3. BISOPROLOL FUMARATE [Concomitant]
     Indication: HYPERCHOLESTEROLAEMIA
     Route: 065
     Dates: start: 20040607, end: 20071001
  4. VOGLIBOSE [Concomitant]
     Route: 065
     Dates: start: 20051001, end: 20071001

REACTIONS (3)
  - DRUG INTERACTION [None]
  - ERYTHEMA [None]
  - HEPATIC FUNCTION ABNORMAL [None]
